FAERS Safety Report 8887772 (Version 9)
Quarter: 2016Q3

REPORT INFORMATION
  Report Type: Spontaneous
  Country: US (occurrence: US)
  Receive Date: 20121106
  Receipt Date: 20160802
  Transmission Date: 20161109
  Serious: Yes (Hospitalization, Other)
  Sender: FDA-Public Use
  Company Number: US-009507513-1211USA000955

PATIENT
  Sex: Female
  Weight: 78.91 kg

DRUGS (5)
  1. ALENDRONATE SODIUM. [Suspect]
     Active Substance: ALENDRONATE SODIUM
     Dosage: 70 MG, QW
     Route: 065
  2. CALCIUM (UNSPECIFIED) [Concomitant]
     Active Substance: CALCIUM
     Indication: PRODUCT USED FOR UNKNOWN INDICATION
     Route: 065
  3. FOSAMAX [Suspect]
     Active Substance: ALENDRONATE SODIUM
     Indication: OSTEOPENIA
     Dosage: 70 MG, QW
     Route: 048
     Dates: start: 200503, end: 2012
  4. FOSAMAX [Suspect]
     Active Substance: ALENDRONATE SODIUM
     Indication: OSTEOPOROSIS
  5. VITAMINS (UNSPECIFIED) [Concomitant]
     Active Substance: VITAMINS
     Indication: PRODUCT USED FOR UNKNOWN INDICATION
     Route: 065

REACTIONS (15)
  - Fall [Unknown]
  - Hypertension [Unknown]
  - Upper respiratory tract infection [Unknown]
  - Femur fracture [Unknown]
  - Palpitations [Unknown]
  - Increased tendency to bruise [Unknown]
  - Haemorrhagic anaemia [Unknown]
  - Dysuria [Unknown]
  - Removal of internal fixation [Unknown]
  - Internal fixation of fracture [Unknown]
  - Nocturia [Unknown]
  - Removal of internal fixation [Unknown]
  - Packed red blood cell transfusion [Unknown]
  - Sinus arrhythmia [Unknown]
  - Anxiety [Unknown]

NARRATIVE: CASE EVENT DATE: 20070918
